FAERS Safety Report 24845140 (Version 1)
Quarter: 2025Q1

REPORT INFORMATION
  Report Type: Spontaneous
  Country: CH (occurrence: CH)
  Receive Date: 20250115
  Receipt Date: 20250115
  Transmission Date: 20250408
  Serious: Yes (Hospitalization, Other)
  Sender: ORGANON
  Company Number: None

PATIENT
  Age: 59 Year
  Sex: Male
  Weight: 85 kg

DRUGS (6)
  1. REMERON [Interacting]
     Active Substance: MIRTAZAPINE
     Dosage: 30 MILLIGRAM, Q24H
     Route: 048
  2. CITALOPRAM [Suspect]
     Active Substance: CITALOPRAM
     Indication: Depression
     Route: 048
     Dates: start: 20241219, end: 20241219
  3. CITALOPRAM [Suspect]
     Active Substance: CITALOPRAM
     Dosage: 40 MILLIGRAM, Q24H
     Route: 048
  4. LITHIUM CARBONATE [Interacting]
     Active Substance: LITHIUM CARBONATE
     Dosage: 12.2 MILLIMOLE, Q24H
     Route: 048
     Dates: end: 20241222
  5. ZUCLOPENTHIXOL DECANOATE [Concomitant]
     Active Substance: ZUCLOPENTHIXOL DECANOATE
     Dosage: 10 MILLIGRAM, Q24H
     Route: 048
  6. SYMBICORT [Concomitant]
     Active Substance: BUDESONIDE\FORMOTEROL FUMARATE DIHYDRATE
     Dosage: 1 DOSAGE FORM, Q12H
     Route: 055

REACTIONS (2)
  - Serotonin syndrome [Unknown]
  - Accidental overdose [Unknown]

NARRATIVE: CASE EVENT DATE: 20241219
